FAERS Safety Report 17012178 (Version 1)
Quarter: 2019Q4

REPORT INFORMATION
  Report Type: Spontaneous
  Country: US (occurrence: US)
  Receive Date: 20191108
  Receipt Date: 20191108
  Transmission Date: 20200122
  Serious: No
  Sender: FDA-Public Use
  Company Number: US-OTSUKA-2019_035051

PATIENT
  Age: 19 Year
  Sex: Female

DRUGS (2)
  1. NUEDEXTA [Suspect]
     Active Substance: DEXTROMETHORPHAN HYDROBROMIDE\QUINIDINE SULFATE
     Indication: CATATONIA
     Dosage: 1 DF, QD
     Route: 065
     Dates: start: 201611
  2. NUEDEXTA [Suspect]
     Active Substance: DEXTROMETHORPHAN HYDROBROMIDE\QUINIDINE SULFATE
     Indication: TRISOMY 21
     Dosage: 1 DF, BID
     Route: 065
     Dates: start: 201701

REACTIONS (1)
  - Drug ineffective for unapproved indication [Unknown]
